FAERS Safety Report 8167971-1 (Version None)
Quarter: 2012Q1

REPORT INFORMATION
  Report Type: 
  Country: None (occurrence: None)
  Receive Date: 20120227
  Receipt Date: 20120113
  Transmission Date: 20120608
  Serious: Yes (Hospitalization)
  Sender: FDA-Public Use
  Company Number: JP-GLAXOSMITHKLINE-B0775890A

PATIENT
  Sex: Female

DRUGS (5)
  1. LAMICTAL [Suspect]
     Indication: SCHIZOPHRENIA
     Dosage: 50MG PER DAY
     Route: 048
     Dates: start: 20111101
  2. VALERIN [Concomitant]
     Indication: PRODUCT USED FOR UNKNOWN INDICATION
     Dosage: 1200MG PER DAY
     Route: 048
  3. SEROQUEL [Concomitant]
     Indication: PRODUCT USED FOR UNKNOWN INDICATION
     Dosage: 200MG PER DAY
     Route: 048
  4. LITHIUM CARBONATE [Concomitant]
     Indication: PRODUCT USED FOR UNKNOWN INDICATION
     Dosage: 600MG PER DAY
     Route: 048
  5. RISPERDAL [Concomitant]
     Indication: SCHIZOPHRENIA
     Route: 065

REACTIONS (8)
  - C-REACTIVE PROTEIN INCREASED [None]
  - LYMPHOCYTE PERCENTAGE INCREASED [None]
  - MONOCYTE PERCENTAGE INCREASED [None]
  - DERMATITIS EXFOLIATIVE [None]
  - WHITE BLOOD CELL COUNT INCREASED [None]
  - EOSINOPHIL PERCENTAGE INCREASED [None]
  - SKIN DISORDER [None]
  - DRUG ERUPTION [None]
